FAERS Safety Report 6445659-2 (Version None)
Quarter: 2009Q4

REPORT INFORMATION
  Report Type: 
  Country: None (occurrence: None)
  Receive Date: 20091118
  Receipt Date: 20091118
  Transmission Date: 20100525
  Serious: No
  Sender: FDA-Public Use
  Company Number: None

PATIENT
  Age: 55 Year
  Sex: Male
  Weight: 145.151 kg

DRUGS (1)
  1. LEVAQUIN [Suspect]
     Indication: LABYRINTHITIS
     Dosage: 750MG ONCE DAILY PO
     Route: 048
     Dates: start: 20091102, end: 20091107

REACTIONS (2)
  - PARAESTHESIA [None]
  - TENDON DISORDER [None]
